FAERS Safety Report 7920421-X (Version None)
Quarter: 2011Q4

REPORT INFORMATION
  Report Type: 
  Country: None (occurrence: None)
  Receive Date: 20111117
  Receipt Date: 20111108
  Transmission Date: 20120403
  Serious: Yes (Other)
  Sender: FDA-Public Use
  Company Number: PHHY2011BE098859

PATIENT
  Sex: Female

DRUGS (3)
  1. FEMARA [Suspect]
     Indication: BREAST CANCER
     Dates: start: 20110801
  2. HERCEPTIN [Concomitant]
     Indication: BREAST CANCER
  3. TASIGNA [Suspect]
     Indication: CHRONIC MYELOID LEUKAEMIA
     Dates: start: 20110201

REACTIONS (3)
  - MYALGIA [None]
  - BLOOD CREATININE INCREASED [None]
  - BLOOD LACTATE DEHYDROGENASE INCREASED [None]
